FAERS Safety Report 8477986-1 (Version None)
Quarter: 2012Q2

REPORT INFORMATION
  Report Type: 
  Country: None (occurrence: None)
  Receive Date: 20120629
  Receipt Date: 20120621
  Transmission Date: 20120825
  Serious: Yes (Other)
  Sender: FDA-Public Use
  Company Number: GB-SANOFI-AVENTIS-2011SA060093

PATIENT
  Age: 44 Year
  Sex: Male

DRUGS (3)
  1. RIFAMPIN AND ISONIAZID [Suspect]
     Indication: PROPHYLAXIS
     Route: 048
     Dates: start: 20010901, end: 20011001
  2. IBUPROFEN [Concomitant]
  3. ACETAMINOPHEN AND CODEINE PHOSPHATE [Concomitant]

REACTIONS (7)
  - PRURITUS [None]
  - LIVER FUNCTION TEST ABNORMAL [None]
  - DYSPNOEA [None]
  - DIZZINESS [None]
  - BILIARY CIRRHOSIS PRIMARY [None]
  - MUSCLE SPASMS [None]
  - PALPITATIONS [None]
